FAERS Safety Report 10645584 (Version 2)
Quarter: 2014Q4

REPORT INFORMATION
  Report Type: Spontaneous
  Country: TR (occurrence: TR)
  Receive Date: 20141211
  Receipt Date: 20141226
  Transmission Date: 20150529
  Serious: Yes (Life-Threatening, Other)
  Sender: FDA-Public Use
  Company Number: US-ASTRAZENECA-2014SE94779

PATIENT
  Sex: Female

DRUGS (1)
  1. CANDESARTAN, HYDROCHLOROTHIAZIDE [Suspect]
     Active Substance: CANDESARTAN CILEXETIL\HYDROCHLOROTHIAZIDE
     Indication: SUICIDE ATTEMPT
     Dosage: 16/12.5 (22 TABLET,ONCE)
     Route: 048
     Dates: start: 20141127, end: 20141127

REACTIONS (3)
  - Overdose [Recovering/Resolving]
  - Hypotension [Recovering/Resolving]
  - Suicide attempt [Recovering/Resolving]

NARRATIVE: CASE EVENT DATE: 20141127
